FAERS Safety Report 24297777 (Version 3)
Quarter: 2025Q1

REPORT INFORMATION
  Report Type: Report from Study
  Country: DE (occurrence: DE)
  Receive Date: 20240909
  Receipt Date: 20250327
  Transmission Date: 20250408
  Serious: Yes (Hospitalization)
  Sender: PFIZER
  Company Number: DE-PFIZER INC-PV202400116487

PATIENT
  Age: 65 Year
  Sex: Male

DRUGS (14)
  1. XELJANZ [Suspect]
     Active Substance: TOFACITINIB CITRATE
     Dosage: 10 MG, 1X/DAY
  2. METHOTREXATE SODIUM [Suspect]
     Active Substance: METHOTREXATE SODIUM
     Dosage: 20 MG, WEEKLY
     Dates: end: 202406
  3. BISOPROLOL [Concomitant]
     Active Substance: BISOPROLOL
     Dosage: 10 MG, 1X/DAY
  4. ETORICOXIB [Concomitant]
     Active Substance: ETORICOXIB
  5. METFORMIN [Concomitant]
     Active Substance: METFORMIN HYDROCHLORIDE
     Dosage: 1000 MG, 2X/DAY
  6. TAMSULOSIN [Concomitant]
     Active Substance: TAMSULOSIN
     Dosage: 0.4 MG, 1X/DAY
  7. PREGABALIN [Concomitant]
     Active Substance: PREGABALIN
     Dosage: 150 MG, 1X/DAY
  8. PREGABALIN [Concomitant]
     Active Substance: PREGABALIN
     Dosage: 225 MG, 1X/DAY
  9. NITRENDIPINE [Concomitant]
     Active Substance: NITRENDIPINE
     Dosage: 10 MG, 1X/DAY
  10. FORMOTEROL FUMARATE\GLYCOPYRROLATE [Concomitant]
     Active Substance: FORMOTEROL FUMARATE\GLYCOPYRROLATE
     Dosage: 2 DF, 2X/DAY
  11. ALBUTEROL [Concomitant]
     Active Substance: ALBUTEROL
     Indication: Dyspnoea
  12. ALBUTEROL [Concomitant]
     Active Substance: ALBUTEROL
     Dosage: UP TO 4X/DAY IN CASE OF DYSPNEA
  13. FOLIC ACID [Concomitant]
     Active Substance: FOLIC ACID
     Dosage: 5 MG, WEEKLY
  14. ATORVASTATIN CALCIUM\EZETIMIBE [Concomitant]
     Active Substance: ATORVASTATIN CALCIUM\EZETIMIBE
     Dosage: 1 DF, 1X/DAY

REACTIONS (1)
  - Infective exacerbation of chronic obstructive airways disease [Recovered/Resolved]

NARRATIVE: CASE EVENT DATE: 20240518
